FAERS Safety Report 10871423 (Version 2)
Quarter: 2015Q1

REPORT INFORMATION
  Report Type: Spontaneous
  Country: FR (occurrence: FR)
  Receive Date: 20150226
  Receipt Date: 20150305
  Transmission Date: 20150721
  Serious: Yes (Hospitalization)
  Sender: FDA-Public Use
  Company Number: FR-PFIZER INC-2015067195

PATIENT
  Age: 54 Year
  Sex: Male

DRUGS (12)
  1. NICOBION [Suspect]
     Active Substance: NIACINAMIDE
     Dosage: 1 G, 1X/DAY
     Route: 048
  2. DEPAKINE [Suspect]
     Active Substance: VALPROATE SODIUM
     Dosage: 500 MG, 2X/DAY
     Route: 048
  3. IMOVANE [Suspect]
     Active Substance: ZOPICLONE
     Dosage: 7.5 MG, 1X/DAY
     Route: 048
  4. XEROQUEL [Suspect]
     Active Substance: QUETIAPINE FUMARATE
     Dosage: 500 MG, 1X/DAY
     Route: 048
  5. ATARAX [Suspect]
     Active Substance: HYDROXYZINE\HYDROXYZINE HYDROCHLORIDE
     Dosage: 25 MG, AS NEEDED
     Route: 048
  6. COVERSYL [Suspect]
     Active Substance: PERINDOPRIL
     Dosage: 2.5 MG, 1X/DAY
     Route: 048
  7. ALDACTONE [Suspect]
     Active Substance: SPIRONOLACTONE
     Dosage: 75 MG, 1X/DAY
     Route: 048
  8. ADCIRCA [Suspect]
     Active Substance: TADALAFIL
     Dosage: 40 MG, 1X/DAY
     Route: 048
  9. LASILIX SPECIAL /00032601/ [Suspect]
     Active Substance: FUROSEMIDE
     Dosage: 125 MG, 1X/DAY
     Route: 048
  10. HARVONI [Suspect]
     Active Substance: LEDIPASVIR\SOFOSBUVIR
     Dosage: 82 MG, 1X/DAY
     Route: 048
     Dates: start: 20150106
  11. DEPAKINE [Suspect]
     Active Substance: VALPROATE SODIUM
     Dosage: 400 MG, 2X/DAY
     Route: 048
  12. PANTOPRAZOLE [Suspect]
     Active Substance: PANTOPRAZOLE SODIUM
     Route: 048

REACTIONS (6)
  - Aphasia [Unknown]
  - Amnesia [Unknown]
  - Epilepsy [Recovered/Resolved]
  - Confusional state [Unknown]
  - Agitation [Unknown]
  - Disorientation [Unknown]

NARRATIVE: CASE EVENT DATE: 20150126
